FAERS Safety Report 9445233 (Version 4)
Quarter: 2014Q2

REPORT INFORMATION
  Report Type: Report from Study
  Country: JP (occurrence: JP)
  Receive Date: 20130807
  Receipt Date: 20140502
  Transmission Date: 20141212
  Serious: Yes (Life-Threatening, Hospitalization)
  Sender: FDA-Public Use
  Company Number: JP-GLAXOSMITHKLINE-B0911884A

PATIENT
  Age: 56 Year
  Sex: Male
  Weight: 80 kg

DRUGS (10)
  1. VOTRIENT 200MG [Suspect]
     Indication: ROUND CELL LIPOSARCOMA
     Dosage: 800MG PER DAY
     Route: 048
     Dates: start: 20130220, end: 20130306
  2. VOTRIENT 200MG [Suspect]
     Indication: ROUND CELL LIPOSARCOMA
     Dosage: 600MG PER DAY
     Route: 048
     Dates: start: 20130307, end: 20130313
  3. VOTRIENT 200MG [Suspect]
     Indication: ROUND CELL LIPOSARCOMA
     Dosage: 400MG PER DAY
     Route: 048
     Dates: start: 20130314, end: 20130321
  4. VOTRIENT 200MG [Suspect]
     Indication: ROUND CELL LIPOSARCOMA
     Dosage: 200MG PER DAY
     Route: 048
     Dates: start: 20130509, end: 20130627
  5. ULCERLMIN [Concomitant]
     Dosage: 900MG THREE TIMES PER DAY
     Route: 048
  6. BIO-THREE [Concomitant]
     Dosage: 1IUAX THREE TIMES PER DAY
     Route: 048
  7. BAYASPIRIN [Concomitant]
     Dosage: 1IUAX PER DAY
     Route: 048
     Dates: end: 20130627
  8. CHINESE MEDICINE [Concomitant]
     Dosage: 2.5G THREE TIMES PER DAY
     Route: 048
  9. FAMOTIDINE D [Concomitant]
     Dosage: 20MG PER DAY
     Route: 048
     Dates: start: 20130425
  10. NORVASC [Concomitant]
     Dosage: 5MG PER DAY
     Route: 048
     Dates: start: 20130425

REACTIONS (3)
  - Haemorrhage [Recovering/Resolving]
  - Gastrointestinal perforation [Recovering/Resolving]
  - Hypertension [Not Recovered/Not Resolved]
